FAERS Safety Report 10871416 (Version 3)
Quarter: 2015Q2

REPORT INFORMATION
  Report Type: Spontaneous
  Country: US (occurrence: US)
  Receive Date: 20150226
  Receipt Date: 20150527
  Transmission Date: 20150821
  Serious: Yes (Hospitalization)
  Sender: FDA-Public Use
  Company Number: US-PFIZER INC-2015069882

PATIENT
  Age: 68 Year
  Sex: Male
  Weight: 83 kg

DRUGS (9)
  1. METOPROLOL [Concomitant]
     Active Substance: METOPROLOL
     Dosage: 50 MG, 4X/DAY
  2. METOPROLOL [Concomitant]
     Active Substance: METOPROLOL
     Dosage: 1 DF, 2X/DAY
  3. AMOXICILLIN. [Concomitant]
     Active Substance: AMOXICILLIN
     Dosage: UNK
  4. REGULAR INSULIN [Concomitant]
     Active Substance: INSULIN NOS
     Dosage: UNK, SLIDING SCALE
  5. SUTENT [Suspect]
     Active Substance: SUNITINIB MALATE
     Indication: METASTATIC RENAL CELL CARCINOMA
     Dosage: 50 MG, DAILY CYCLIC
     Dates: start: 20150206, end: 20150303
  6. COMPAZINE [Concomitant]
     Active Substance: PROCHLORPERAZINE MALEATE
     Indication: NAUSEA
     Dosage: UNK, AS NEEDED
  7. LANTUS [Concomitant]
     Active Substance: INSULIN GLARGINE
     Dosage: 20 IU, NIGHTLY
  8. TYLENOL [Concomitant]
     Active Substance: ACETAMINOPHEN
     Dosage: UNK, AS NEEDED (OCCASIONAL)
  9. VITAMINS WITH MINERALS [Concomitant]
     Active Substance: MINERALS\VITAMINS
     Dosage: UNK

REACTIONS (21)
  - Cough [Recovered/Resolved]
  - Vomiting [Unknown]
  - Asthenia [Recovered/Resolved]
  - Dyspnoea [Unknown]
  - Fatigue [Unknown]
  - Blood pressure increased [Unknown]
  - Headache [Unknown]
  - Gait disturbance [Unknown]
  - Hypersomnia [Unknown]
  - Hypoaesthesia [Unknown]
  - Metastatic renal cell carcinoma [Unknown]
  - Retching [Recovered/Resolved]
  - Somnolence [Unknown]
  - Disease progression [Unknown]
  - Decreased appetite [Unknown]
  - Dehydration [Recovered/Resolved]
  - Nausea [Unknown]
  - Pain [Unknown]
  - Paraesthesia [Unknown]
  - Abdominal pain upper [Unknown]
  - Back pain [Unknown]

NARRATIVE: CASE EVENT DATE: 2015
